FAERS Safety Report 7079874-4 (Version None)
Quarter: 2010Q4

REPORT INFORMATION
  Report Type: 
  Country: None (occurrence: None)
  Receive Date: 20101102
  Receipt Date: 20101026
  Transmission Date: 20110411
  Serious: Yes (Hospitalization, Other)
  Sender: FDA-Public Use
  Company Number: BR-SANOFI-AVENTIS-2010SA065812

PATIENT
  Age: 28 Year
  Sex: Male
  Weight: 39 kg

DRUGS (5)
  1. LANTUS [Suspect]
     Indication: TYPE 1 DIABETES MELLITUS
     Dosage: 10-12-IU PER DAY
     Route: 058
     Dates: start: 20070101
  2. AUTOPEN 24 [Suspect]
  3. OMEPRAZOLE [Concomitant]
     Indication: GASTRIC DISORDER
     Route: 048
     Dates: start: 20101001
  4. TEGRETOL [Concomitant]
     Indication: CONVULSION
     Route: 048
  5. RIVOTRIL [Concomitant]
     Indication: SEDATION
     Route: 048

REACTIONS (2)
  - HYPOGLYCAEMIA [None]
  - PNEUMONIA [None]
